FAERS Safety Report 9798557 (Version 1)
Quarter: 2014Q1

REPORT INFORMATION
  Report Type: Spontaneous
  Country: FR (occurrence: FR)
  Receive Date: 20140106
  Receipt Date: 20140106
  Transmission Date: 20141002
  Serious: Yes (Hospitalization)
  Sender: FDA-Public Use
  Company Number: FR-SA-2014SA000875

PATIENT
  Age: 86 Year
  Sex: Male

DRUGS (8)
  1. PERINDOPRIL [Suspect]
     Indication: PRODUCT USED FOR UNKNOWN INDICATION
     Route: 065
  2. LASILIX [Interacting]
     Indication: PRODUCT USED FOR UNKNOWN INDICATION
     Route: 065
     Dates: end: 20131004
  3. ACETYLLEUCINE [Concomitant]
  4. ESOMEPRAZOLE [Concomitant]
  5. KALEORID [Concomitant]
  6. TANGANIL [Concomitant]
     Indication: VERTIGO
  7. PREVISCAN [Concomitant]
  8. DICLOFENAC [Concomitant]

REACTIONS (4)
  - Fall [Recovered/Resolved]
  - Drug interaction [Unknown]
  - Craniocerebral injury [Recovered/Resolved]
  - Orthostatic hypotension [Recovered/Resolved]
